FAERS Safety Report 22214750 (Version 1)
Quarter: 2023Q2

REPORT INFORMATION
  Report Type: Spontaneous
  Country: DE (occurrence: DE)
  Receive Date: 20230415
  Receipt Date: 20230415
  Transmission Date: 20230721
  Serious: Yes (Other)
  Sender: FDA-Public Use
  Company Number: DE-002147023-NVSC2023DE085467

PATIENT
  Sex: Male

DRUGS (10)
  1. NALOXONE HYDROCHLORIDE\TILIDINE HYDROCHLORIDE [Suspect]
     Active Substance: NALOXONE HYDROCHLORIDE\TILIDINE HYDROCHLORIDE
     Indication: Pain
     Dosage: 2 DOSAGE FORM, BID (1-0-1-0) (THE PATIENT HAS BEEN TAKING TILIDIN FOR ABOUT 10 YEARS)
     Route: 065
  2. NALOXONE HYDROCHLORIDE\TILIDINE HYDROCHLORIDE [Suspect]
     Active Substance: NALOXONE HYDROCHLORIDE\TILIDINE HYDROCHLORIDE
     Dosage: 2 DOSAGE FORM, BID (1-0-1-0)
     Route: 065
  3. TORSEMIDE [Suspect]
     Active Substance: TORSEMIDE
     Indication: Product used for unknown indication
     Dosage: 0.5 DOSAGE FORM, BID (? - 0- ? -0)
     Route: 065
  4. PANTOPRAZOLE [Suspect]
     Active Substance: PANTOPRAZOLE
     Indication: Product used for unknown indication
     Dosage: 1 DOSAGE FORM, QD (1-0-0-0)
     Route: 065
  5. METOPROLOL TARTRATE [Suspect]
     Active Substance: METOPROLOL TARTRATE
     Indication: Product used for unknown indication
     Dosage: 2 DOSAGE FORM, BID (1-0-1-0)
     Route: 065
  6. MAGNESIUM [Suspect]
     Active Substance: MAGNESIUM
     Indication: Product used for unknown indication
     Dosage: 3 DOSAGE FORM, QD (3-0-0-0)
     Route: 065
  7. FALITHROM [Suspect]
     Active Substance: PHENPROCOUMON
     Indication: Anticoagulant therapy
     Dosage: 0.5 DOSAGE FORM, BID (? - 0 ? ? )
     Route: 065
  8. DIGITOXIN [Suspect]
     Active Substance: DIGITOXIN
     Indication: Product used for unknown indication
     Dosage: 1 DOSAGE FORM, QD (1-0-0-0) (STRENGTH: 0,07 MG)
     Route: 065
  9. CITRIC ACID [Suspect]
     Active Substance: CITRIC ACID MONOHYDRATE
     Indication: Product used for unknown indication
     Dosage: 2.057 G
     Route: 065
  10. POTASSIUM CHLORIDE [Suspect]
     Active Substance: POTASSIUM CHLORIDE
     Indication: Product used for unknown indication
     Dosage: 0.78 G, BID (1-0-1-0)
     Route: 065

REACTIONS (6)
  - Intestinal haemorrhage [Unknown]
  - Gastric haemorrhage [Unknown]
  - Haemorrhage [Unknown]
  - Pain [Unknown]
  - Skin discolouration [Unknown]
  - Prothrombin time prolonged [Not Recovered/Not Resolved]
